FAERS Safety Report 9915842 (Version 1)
Quarter: 2014Q1

REPORT INFORMATION
  Report Type: Spontaneous
  Country: US (occurrence: None)
  Receive Date: 20140219
  Receipt Date: 20140219
  Transmission Date: 20141002
  Serious: Yes (Disabling)
  Sender: FDA-Public Use
  Company Number: None

PATIENT
  Age: 40 Year
  Sex: Male
  Weight: 81.65 kg

DRUGS (1)
  1. LIPITOR (ATORVASTATIN) [Suspect]
     Indication: BLOOD TRIGLYCERIDES INCREASED
     Dosage: TAKEN BY MOUTH
     Dates: start: 20000101, end: 20120109

REACTIONS (4)
  - Confusional state [None]
  - Depression [None]
  - Gait disturbance [None]
  - Loss of employment [None]
